FAERS Safety Report 13899561 (Version 4)
Quarter: 2018Q1

REPORT INFORMATION
  Report Type: Spontaneous
  Country: US (occurrence: US)
  Receive Date: 20170823
  Receipt Date: 20180220
  Transmission Date: 20180508
  Serious: Yes (Other)
  Sender: FDA-Public Use
  Company Number: US-JAZZ-2017-US-006627

PATIENT
  Age: 25 Year
  Sex: Female

DRUGS (29)
  1. XYREM [Suspect]
     Active Substance: SODIUM OXYBATE
     Indication: NARCOLEPSY
     Dosage: 2.25G, BID
     Route: 048
     Dates: start: 201404, end: 201405
  2. LUTERA [Concomitant]
     Active Substance: ETHINYL ESTRADIOL\LEVONORGESTREL
  3. TRAMADOL HCL [Concomitant]
     Active Substance: TRAMADOL HYDROCHLORIDE
  4. OVCON [Concomitant]
     Active Substance: ETHINYL ESTRADIOL\NORETHINDRONE
  5. PROMETHAZINE [Concomitant]
     Active Substance: PROMETHAZINE\PROMETHAZINE HYDROCHLORIDE
  6. KLONOPIN [Concomitant]
     Active Substance: CLONAZEPAM
  7. KETOROLAC [Concomitant]
     Active Substance: KETOROLAC\KETOROLAC TROMETHAMINE
  8. BENADRYL ALLERGY [Concomitant]
     Active Substance: DIPHENHYDRAMINE HYDROCHLORIDE
  9. TRAZODONE [Concomitant]
     Active Substance: TRAZODONE HYDROCHLORIDE
  10. VIIBRYD [Concomitant]
     Active Substance: VILAZODONE HYDROCHLORIDE
  11. MOTRIN [Concomitant]
     Active Substance: IBUPROFEN
  12. PERCOCET                           /00446701/ [Concomitant]
     Active Substance: ACETAMINOPHEN\OXYCODONE HYDROCHLORIDE\OXYCODONE TEREPHTHALATE
  13. ELMIRON [Concomitant]
     Active Substance: PENTOSAN POLYSULFATE SODIUM
  14. NEURONTIN [Concomitant]
     Active Substance: GABAPENTIN
  15. SKELAXIN [Concomitant]
     Active Substance: METAXALONE
  16. PREDNISONE. [Concomitant]
     Active Substance: PREDNISONE
  17. RABEPRAZOLE [Concomitant]
     Active Substance: RABEPRAZOLE
  18. XYREM [Suspect]
     Active Substance: SODIUM OXYBATE
     Dosage: 2.75G, QD
     Route: 048
     Dates: start: 201703
  19. LUPRON DEPOT [Concomitant]
     Active Substance: LEUPROLIDE ACETATE
  20. METHOTREXATE. [Concomitant]
     Active Substance: METHOTREXATE
  21. PROAIR HFA [Concomitant]
     Active Substance: ALBUTEROL SULFATE
  22. ESTRADIOL. [Concomitant]
     Active Substance: ESTRADIOL
  23. PEPCID                             /00305201/ [Concomitant]
     Active Substance: ALUMINUM HYDROXIDE\MAGNESIUM CARBONATE
  24. PRILOSEC [Concomitant]
     Active Substance: OMEPRAZOLE MAGNESIUM
  25. HYDROXYZINE HCL [Concomitant]
     Active Substance: HYDROXYZINE HYDROCHLORIDE
  26. XYREM [Suspect]
     Active Substance: SODIUM OXYBATE
     Dosage: DOSE ADJUSTMENT
     Route: 048
     Dates: start: 201405, end: 201703
  27. XYREM [Suspect]
     Active Substance: SODIUM OXYBATE
     Dosage: 2.75 G, QD; FIRST DOSE
     Route: 048
     Dates: start: 201703
  28. PROVIGIL [Concomitant]
     Active Substance: MODAFINIL
  29. LAMICTAL [Concomitant]
     Active Substance: LAMOTRIGINE

REACTIONS (11)
  - Suicidal ideation [Recovering/Resolving]
  - Therapeutic response decreased [Unknown]
  - Gastrooesophageal reflux disease [Not Recovered/Not Resolved]
  - Migraine [Not Recovered/Not Resolved]
  - Incontinence [Not Recovered/Not Resolved]
  - Peak expiratory flow rate decreased [Unknown]
  - Post concussion syndrome [Not Recovered/Not Resolved]
  - Concussion [Not Recovered/Not Resolved]
  - Dyspnoea [Not Recovered/Not Resolved]
  - Headache [Unknown]
  - Restlessness [Not Recovered/Not Resolved]

NARRATIVE: CASE EVENT DATE: 2017
